FAERS Safety Report 17712507 (Version 1)
Quarter: 2020Q2

REPORT INFORMATION
  Report Type: Spontaneous
  Country: DE (occurrence: DE)
  Receive Date: 20200427
  Receipt Date: 20200427
  Transmission Date: 20200714
  Serious: Yes (Hospitalization)
  Sender: FDA-Public Use
  Company Number: DE-PFIZER INC-2020162995

PATIENT
  Age: 69 Year
  Sex: Female

DRUGS (13)
  1. FOLIC ACID. [Concomitant]
     Active Substance: FOLIC ACID
     Dosage: 5 MG, 1-0-0-0
  2. FUROSEMID [Concomitant]
     Active Substance: FUROSEMIDE
     Dosage: 40 MG, 1-0-0-0
  3. SPIRONOLACTON [Concomitant]
     Active Substance: SPIRONOLACTONE
     Dosage: 50 MG, 1-1-0-0
  4. IBUPROFEN. [Suspect]
     Active Substance: IBUPROFEN
     Dosage: 400 MG, 1-0-1-0
  5. VITAMIN B COMPLEX NOS [Concomitant]
     Active Substance: CYANOCOBALAMIN\PYRIDOXINE HYDROCHLORIDE\RIBOFLAVIN\SODIUM PANTOTHENATE\THIAMINE HYDROCHLORIDE\VITAMIN B COMPLEX
     Dosage: 1-0-0-0
  6. NEUROTRAT S [Concomitant]
     Active Substance: PYRIDOXINE\THIAMINE
     Dosage: 1-0-0-0
  7. DOCITON [Concomitant]
     Active Substance: PROPRANOLOL HYDROCHLORIDE
     Dosage: 40 MG, 0.5-0-0.5-0
  8. ENOXAPARIN [Suspect]
     Active Substance: ENOXAPARIN
     Dosage: 40 MG, 0-0-1-0
  9. LORAZEPAM. [Concomitant]
     Active Substance: LORAZEPAM
     Dosage: 0.5 MG, 0-0-1-0
  10. LEVOTHYROXINE SODIUM. [Concomitant]
     Active Substance: LEVOTHYROXINE SODIUM
     Dosage: 50 ?G, 1-0-0-0
  11. NALOXONE HYDROCHLORIDE/TILIDINE PHOSPHATE [Concomitant]
     Active Substance: NALOXONE HYDROCHLORIDE\TILIDINE PHOSPHATE
     Dosage: 1-0-1-0
  12. PANTOPRAZOL [PANTOPRAZOLE] [Concomitant]
     Active Substance: PANTOPRAZOLE
     Dosage: 40 MG, 0-0-1-0
  13. REKAWAN [Concomitant]
     Active Substance: POTASSIUM CHLORIDE
     Dosage: 600 MG, 1-1-1-0

REACTIONS (4)
  - Pallor [Unknown]
  - Haematemesis [Unknown]
  - Product prescribing error [Unknown]
  - Anaemia [Unknown]
